FAERS Safety Report 8238158-9 (Version None)
Quarter: 2012Q1

REPORT INFORMATION
  Report Type: 
  Country: None (occurrence: None)
  Receive Date: 20120327
  Receipt Date: 20120312
  Transmission Date: 20120608
  Serious: Yes (Hospitalization)
  Sender: FDA-Public Use
  Company Number: DE-ROCHE-1015820

PATIENT
  Sex: Female
  Weight: 48 kg

DRUGS (5)
  1. AVASTIN [Suspect]
     Indication: LUNG ADENOCARCINOMA
     Route: 042
     Dates: start: 20110516
  2. PEMETREXED DISODIUM [Suspect]
     Indication: LUNG ADENOCARCINOMA
     Route: 042
     Dates: start: 20110308
  3. DIOVAN [Concomitant]
     Indication: HYPERTENSION
     Route: 048
     Dates: start: 20110513
  4. METOPROLOL SUCCINATE [Concomitant]
     Indication: HYPERTENSION
     Route: 048
     Dates: start: 20110513
  5. AMLODIPINE [Concomitant]
     Indication: HYPERTENSION
     Route: 048
     Dates: start: 20110513

REACTIONS (5)
  - INTESTINAL POLYP [None]
  - DIARRHOEA HAEMORRHAGIC [None]
  - DYSPNOEA [None]
  - ENTEROCOLITIS INFECTIOUS [None]
  - CHEST PAIN [None]
